FAERS Safety Report 6267943-8 (Version None)
Quarter: 2009Q3

REPORT INFORMATION
  Report Type: 
  Country: None (occurrence: None)
  Receive Date: 20090713
  Receipt Date: 20090702
  Transmission Date: 20100115
  Serious: Yes (Hospitalization)
  Sender: FDA-Public Use
  Company Number: PAR_03075_2009

PATIENT
  Sex: Female
  Weight: 58.9676 kg

DRUGS (1)
  1. MEGACE ES [Suspect]
     Indication: DECREASED APPETITE
     Dosage: 625 MG,/5 ML, ORAL
     Route: 048
     Dates: start: 20090609

REACTIONS (3)
  - DRUG EFFECT DECREASED [None]
  - LIQUID PRODUCT PHYSICAL ISSUE [None]
  - UNEVALUABLE EVENT [None]
